FAERS Safety Report 7386295-3 (Version None)
Quarter: 2011Q1

REPORT INFORMATION
  Report Type: 
  Country: None (occurrence: None)
  Receive Date: 20110331
  Receipt Date: 20110317
  Transmission Date: 20110831
  Serious: Yes (Other)
  Sender: FDA-Public Use
  Company Number: PHHY2011NZ21887

PATIENT
  Sex: Male

DRUGS (2)
  1. FLUPENTIXOL [Concomitant]
  2. CLOZARIL [Suspect]
     Indication: SCHIZOPHRENIA
     Dosage: 225 MG, QD
     Dates: start: 20101022, end: 20110121

REACTIONS (5)
  - FALL [None]
  - WHITE BLOOD CELL COUNT INCREASED [None]
  - NEUTROPHIL COUNT INCREASED [None]
  - DIZZINESS [None]
  - SEDATION [None]
